FAERS Safety Report 9340474 (Version 1)
Quarter: 2013Q2

REPORT INFORMATION
  Report Type: Spontaneous
  Country: PL (occurrence: None)
  Receive Date: 20130605
  Receipt Date: 20130605
  Transmission Date: 20140414
  Serious: Yes (Other)
  Sender: FDA-Public Use
  Company Number: AUR-APL-2013-04551

PATIENT
  Age: 67 Year
  Sex: Female
  Weight: 69 kg

DRUGS (17)
  1. ROSUVASTATIN (ROSUVASTATIN) [Suspect]
     Indication: MYOCARDIAL ISCHAEMIA
  2. ROSUVASTATIN (ROSUVASTATIN) [Suspect]
     Indication: HYPERCHOLESTEROLAEMIA
  3. BISOPROLOL (BISOPROLOL) [Suspect]
     Indication: MYOCARDIAL ISCHAEMIA
  4. BISOPROLOL (BISOPROLOL) [Suspect]
     Indication: HYPERCHOLESTEROLAEMIA
  5. AMIODARONE HCL [Suspect]
     Indication: ATRIAL FIBRILLATION
  6. SOTALOL HYDROCHLORIDE [Suspect]
     Indication: ATRIAL FIBRILLATION
     Dosage: 120 MG (40 MG,3 IN 1 D)
  7. PROPRANOLOL HYDROCHLORIDE [Suspect]
     Indication: ATRIAL FIBRILLATION
     Dosage: 120 MG (40 MG,3 IN 1 D)
  8. WARFARIN (WARFARIN) [Concomitant]
  9. QUINAPRIL (QUINAPRIL) [Concomitant]
  10. PROPAFENONE  (PROPAFENONE) [Concomitant]
  11. ADRENALIN (EPINEPHRINEE) [Concomitant]
  12. ATROPINE (ATROPINE) [Concomitant]
  13. DRONEDARONE (DRONEDARONE) [Concomitant]
  14. BETAXOLOL (BETAXOLOL) [Concomitant]
  15. TRIMETAZIDINE (TRIMETAZIDINE) [Concomitant]
  16. THIAMAZOLE (THIAMZAOLE) [Concomitant]
  17. EPINEPHRINE (EPINEPHRINE) [Concomitant]

REACTIONS (12)
  - Drug ineffective [None]
  - Hyperthyroidism [None]
  - Hypotension [None]
  - Bradycardia [None]
  - Alanine aminotransferase increased [None]
  - Aspartate aminotransferase increased [None]
  - Cardiac arrest [None]
  - Atrial fibrillation [None]
  - Disease recurrence [None]
  - Quality of life decreased [None]
  - International normalised ratio abnormal [None]
  - Drug interaction [None]
